FAERS Safety Report 24392020 (Version 4)
Quarter: 2025Q2

REPORT INFORMATION
  Report Type: Spontaneous
  Country: GB (occurrence: GB)
  Receive Date: 20241003
  Receipt Date: 20250411
  Transmission Date: 20250716
  Serious: Yes (Other)
  Sender: TEVA
  Company Number: GB-TEVA-VS-3247543

PATIENT
  Age: 41 Year
  Sex: Female

DRUGS (4)
  1. PROGESTERONE [Suspect]
     Active Substance: PROGESTERONE
     Indication: Gynaecological disorder prophylaxis
     Route: 067
  2. PREDNISOLONE [Suspect]
     Active Substance: PREDNISOLONE
     Indication: Vasculitis
     Route: 065
  3. PREDNISOLONE [Suspect]
     Active Substance: PREDNISOLONE
     Indication: Vasculitis
     Route: 065
  4. LORATADINE [Suspect]
     Active Substance: LORATADINE
     Indication: Pruritus
     Route: 065

REACTIONS (2)
  - Autoimmune dermatitis [Recovered/Resolved]
  - Maternal exposure during pregnancy [Unknown]
